FAERS Safety Report 14636466 (Version 1)
Quarter: 2018Q1

REPORT INFORMATION
  Report Type: Spontaneous
  Country: US (occurrence: US)
  Receive Date: 20180314
  Receipt Date: 20180314
  Transmission Date: 20180509
  Serious: Yes (Other)
  Sender: FDA-Public Use
  Company Number: US-JNJFOC-20180305448

PATIENT
  Age: 66 Year
  Sex: Male
  Weight: 97.52 kg

DRUGS (5)
  1. XARELTO [Suspect]
     Active Substance: RIVAROXABAN
     Indication: THROMBOSIS
     Dosage: FOR  RUNNING A CAMERA DOWN THE THROAT
     Route: 048
     Dates: start: 2017, end: 2017
  2. XARELTO [Suspect]
     Active Substance: RIVAROXABAN
     Indication: THROMBOSIS
     Route: 048
  3. XARELTO [Suspect]
     Active Substance: RIVAROXABAN
     Indication: THROMBOSIS
     Dosage: STOPPED FOR COLONOSCOPY
     Route: 048
     Dates: end: 2017
  4. XARELTO [Suspect]
     Active Substance: RIVAROXABAN
     Indication: THROMBOSIS
     Dosage: STOPPED FOR SHOULDER SURGERY
     Route: 048
     Dates: start: 2017, end: 2017
  5. XARELTO [Suspect]
     Active Substance: RIVAROXABAN
     Indication: THROMBOSIS
     Route: 048
     Dates: start: 201604, end: 2016

REACTIONS (5)
  - Gastric polyps [Recovered/Resolved]
  - Arthritis [Not Recovered/Not Resolved]
  - Exostosis [Unknown]
  - Gastrooesophageal reflux disease [Unknown]
  - Oesophageal disorder [Not Recovered/Not Resolved]

NARRATIVE: CASE EVENT DATE: 2017
